FAERS Safety Report 18485818 (Version 1)
Quarter: 2020Q4

REPORT INFORMATION
  Report Type: Spontaneous
  Country: FR (occurrence: FR)
  Receive Date: 20201110
  Receipt Date: 20201110
  Transmission Date: 20210114
  Serious: Yes (Other)
  Sender: FDA-Public Use
  Company Number: FR-PFIZER INC-2020430453

PATIENT
  Age: 90 Year
  Sex: Female

DRUGS (3)
  1. AMLOR [Suspect]
     Active Substance: AMLODIPINE BESYLATE
     Indication: HYPERTENSION
     Dosage: 10 MG, 1X/DAY (2 CAPSULES AT THE EVENING)
     Route: 048
     Dates: start: 20200908, end: 20201014
  2. EFFEXOR LP [Suspect]
     Active Substance: VENLAFAXINE HYDROCHLORIDE
     Indication: ANXIETY DISORDER
     Dosage: 75 MG, 1X/DAY (2 CAPSULES AT THE MORNING)
     Route: 048
     Dates: start: 20200907, end: 20201014
  3. AUGMENTINE [AMOXICILLIN TRIHYDRATE;CLAVULANATE POTASSIUM] [Suspect]
     Active Substance: AMOXICILLIN\CLAVULANATE POTASSIUM
     Indication: CYSTITIS
     Dosage: 3 DF, 1X/DAY
     Route: 048
     Dates: start: 20200912, end: 20200918

REACTIONS (1)
  - Cholestasis [Not Recovered/Not Resolved]

NARRATIVE: CASE EVENT DATE: 20200918
